FAERS Safety Report 7884171-0 (Version None)
Quarter: 2011Q4

REPORT INFORMATION
  Report Type: 
  Country: None (occurrence: None)
  Receive Date: 20111102
  Receipt Date: 20111025
  Transmission Date: 20120403
  Serious: Yes (Death, Hospitalization, Other)
  Sender: FDA-Public Use
  Company Number: JP-GLAXOSMITHKLINE-B0755296A

PATIENT
  Age: 51 Year
  Sex: Female

DRUGS (2)
  1. TYKERB [Suspect]
     Indication: PRODUCT USED FOR UNKNOWN INDICATION
     Route: 048
     Dates: start: 20100408, end: 20100603
  2. XELODA [Concomitant]
     Route: 048
     Dates: start: 20100408, end: 20100603

REACTIONS (7)
  - BLOOD BILIRUBIN INCREASED [None]
  - HYPERCALCAEMIA [None]
  - SUPERIOR VENA CAVA SYNDROME [None]
  - DEATH [None]
  - FACE OEDEMA [None]
  - DYSPNOEA [None]
  - JAUNDICE CHOLESTATIC [None]
